APPROVED DRUG PRODUCT: PREDNISOLONE SODIUM PHOSPHATE
Active Ingredient: PREDNISOLONE SODIUM PHOSPHATE
Strength: EQ 0.11% PHOSPHATE
Dosage Form/Route: SOLUTION/DROPS;OPHTHALMIC
Application: A040065 | Product #001
Applicant: BAUSCH AND LOMB INC
Approved: Jul 29, 1994 | RLD: No | RS: No | Type: DISCN